FAERS Safety Report 6314203-2 (Version None)
Quarter: 2009Q3

REPORT INFORMATION
  Report Type: 
  Country: None (occurrence: None)
  Receive Date: 20090817
  Receipt Date: 20090804
  Transmission Date: 20100115
  Serious: Yes (Hospitalization)
  Sender: FDA-Public Use
  Company Number: 2009-03163

PATIENT
  Age: 79 Year
  Sex: Male
  Weight: 68.3 kg

DRUGS (13)
  1. VELCADE [Suspect]
     Indication: MULTIPLE MYELOMA
     Dosage: 1.3 MG/M2, IV BOLUS
     Route: 040
     Dates: start: 20090317, end: 20090731
  2. MELPHALAN HYDROCHLORIDE [Suspect]
     Indication: MULTIPLE MYELOMA
     Dosage: 9 MG/M2, ORAL
     Route: 048
     Dates: start: 20090317, end: 20090724
  3. PREDNISONE [Suspect]
     Indication: MULTIPLE MYELOMA
     Dosage: 60 MG/M2, ORAL
     Route: 048
     Dates: start: 20090317, end: 20090724
  4. ACYCLOVIR [Concomitant]
  5. SIMVASTATIN [Concomitant]
  6. ESOMEPRAZOLE MAGNESIUM [Concomitant]
  7. FINASTERIDE [Concomitant]
  8. MULTIVITAMIN [Concomitant]
  9. SODIUM CHLORIDE 0.9% [Concomitant]
  10. ACETAMINOPHEN [Concomitant]
  11. INSULIN ASPART (INSULIN ASPART) [Concomitant]
  12. DOCUSATE SODIUM (DOCUSATE SODIUM) [Concomitant]
  13. SENNA (SENNA) [Concomitant]

REACTIONS (3)
  - MUSCULAR WEAKNESS [None]
  - PAIN [None]
  - WEIGHT BEARING DIFFICULTY [None]
